FAERS Safety Report 7127950-X (Version None)
Quarter: 2010Q4

REPORT INFORMATION
  Report Type: 
  Country: None (occurrence: None)
  Receive Date: 20101112
  Receipt Date: 20101103
  Transmission Date: 20110411
  Serious: Yes (Other)
  Sender: FDA-Public Use
  Company Number: 20109498

PATIENT
  Sex: Female

DRUGS (1)
  1. LIORESAL [Suspect]
     Indication: MUSCLE SPASTICITY
     Dosage: .048ML/DAY, 24.98 MCG/DAY; 50 MCG/DAY ; INTRATHECAL
     Route: 039

REACTIONS (1)
  - RASH GENERALISED [None]
